FAERS Safety Report 5693758-5 (Version None)
Quarter: 2008Q2

REPORT INFORMATION
  Report Type: 
  Country: None (occurrence: None)
  Receive Date: 20080403
  Receipt Date: 20080326
  Transmission Date: 20081010
  Serious: Yes (Disabling, Other)
  Sender: FDA-Public Use
  Company Number: US-JNJFOC-20080306841

PATIENT
  Sex: Female
  Weight: 81.65 kg

DRUGS (1)
  1. DURAGESIC-100 [Suspect]
     Indication: PAIN
     Route: 062

REACTIONS (4)
  - GAIT DISTURBANCE [None]
  - INFECTION [None]
  - WEIGHT INCREASED [None]
  - WRIST FRACTURE [None]
